FAERS Safety Report 10389351 (Version 1)
Quarter: 2014Q3

REPORT INFORMATION
  Report Type: Spontaneous
  Country: US (occurrence: US)
  Receive Date: 20140818
  Receipt Date: 20140818
  Transmission Date: 20150326
  Serious: No
  Sender: FDA-Public Use
  Company Number: US-009507513-1408USA002316

PATIENT
  Age: 24 Year
  Sex: Female
  Weight: 95.24 kg

DRUGS (2)
  1. IMPLANON [Suspect]
     Active Substance: ETONOGESTREL
     Dosage: UNK
     Route: 059
  2. NEXPLANON [Suspect]
     Active Substance: ETONOGESTREL
     Indication: CONTRACEPTION
     Dosage: 1 ROD, 3 YEARS INSERTED IN LEFT ARM
     Route: 059
     Dates: start: 20131030

REACTIONS (3)
  - Weight increased [Unknown]
  - Acne [Unknown]
  - Acne [Unknown]

NARRATIVE: CASE EVENT DATE: 201404
